FAERS Safety Report 18446724 (Version 3)
Quarter: 2021Q1

REPORT INFORMATION
  Report Type: Report from Study
  Country: CL (occurrence: CL)
  Receive Date: 20201030
  Receipt Date: 20210205
  Transmission Date: 20210419
  Serious: Yes (Hospitalization, Other)
  Sender: FDA-Public Use
  Company Number: NVSC2020CL132662

PATIENT
  Age: 49 Year
  Sex: Female

DRUGS (1)
  1. KISQALI [Suspect]
     Active Substance: RIBOCICLIB
     Indication: BREAST CANCER
     Dosage: 600 MG, QD
     Route: 048
     Dates: start: 20190601

REACTIONS (17)
  - Red cell distribution width increased [Unknown]
  - Aphasia [Unknown]
  - Neutrophil count decreased [Unknown]
  - Anisocytosis [Unknown]
  - Lymphocyte count abnormal [Unknown]
  - Mean cell haemoglobin increased [Unknown]
  - White blood cell count decreased [Unknown]
  - Cerebral infarction [Unknown]
  - Hypoaesthesia [Unknown]
  - Red blood cell count decreased [Unknown]
  - Decreased immune responsiveness [Unknown]
  - Haemoglobin decreased [Unknown]
  - Mean cell volume increased [Unknown]
  - Macrocytosis [Unknown]
  - Haematocrit decreased [Unknown]
  - Elliptocytosis [Unknown]
  - Poikilocytosis [Unknown]

NARRATIVE: CASE EVENT DATE: 20200512
